FAERS Safety Report 4750334-6 (Version None)
Quarter: 2005Q3

REPORT INFORMATION
  Report Type: 
  Country: None (occurrence: None)
  Receive Date: 20050823
  Receipt Date: 20040412
  Transmission Date: 20060218
  Serious: Yes (Hospitalization, Disabling)
  Sender: FDA-Public Use
  Company Number: US-BRISTOL-MYERS SQUIBB COMPANY-12558664

PATIENT
  Age: 8 Year
  Sex: Male
  Weight: 35 kg

DRUGS (7)
  1. ABILIFY [Suspect]
     Indication: BIPOLAR DISORDER
     Route: 048
     Dates: start: 20031231, end: 20040123
  2. ZYPREXA [Concomitant]
     Dosage: DOSE VALUE:  1.25-7.5
     Dates: start: 20031022, end: 20040119
  3. ZOLOFT [Concomitant]
     Indication: ANXIETY
     Dates: start: 20030101, end: 20040119
  4. CLONIDINE [Concomitant]
     Indication: ATTENTION DEFICIT/HYPERACTIVITY DISORDER
     Dates: start: 20030609, end: 20041001
  5. DDAVP [Concomitant]
     Indication: ENURESIS
     Dates: start: 20030501, end: 20040601
  6. TENEX [Concomitant]
     Indication: BIPOLAR DISORDER
     Dates: start: 20030501, end: 20040126
  7. MELATONIN [Concomitant]
     Indication: INSOMNIA

REACTIONS (5)
  - BLOOD GLUCOSE INCREASED [None]
  - DIABETES MELLITUS INSULIN-DEPENDENT [None]
  - DRUG INEFFECTIVE [None]
  - NAUSEA [None]
  - URINE KETONE BODY PRESENT [None]
